FAERS Safety Report 7525143-5 (Version None)
Quarter: 2011Q2

REPORT INFORMATION
  Report Type: 
  Country: None (occurrence: None)
  Receive Date: 20110606
  Receipt Date: 20110526
  Transmission Date: 20111010
  Serious: Yes (Life-Threatening)
  Sender: FDA-Public Use
  Company Number: PL-TYCO HEALTHCARE/MALLINCKRODT-T201101147

PATIENT
  Sex: Female
  Weight: 60 kg

DRUGS (4)
  1. ASPIRIN [Concomitant]
     Dosage: 75 MG, UNK
  2. OPTIRAY 300 [Suspect]
     Indication: COMPUTERISED TOMOGRAM
     Dosage: 80 ML, SINGLE
     Route: 042
     Dates: start: 20110513, end: 20110513
  3. PERINDOPRIL ERBUMINE [Concomitant]
  4. BISOPROLOL FUMARATE [Concomitant]

REACTIONS (1)
  - HEADACHE [None]
